FAERS Safety Report 4500880-5 (Version None)
Quarter: 2004Q4

REPORT INFORMATION
  Report Type: 
  Country: None (occurrence: None)
  Receive Date: 20041109
  Receipt Date: 20041025
  Transmission Date: 20050328
  Serious: Yes (Life-Threatening, Hospitalization)
  Sender: FDA-Public Use
  Company Number: USA-2004-0017136

PATIENT
  Sex: Female
  Weight: 86.2 kg

DRUGS (7)
  1. OXYCONTIN [Suspect]
     Dosage: SEE IMAGE
     Dates: start: 20040902, end: 20040924
  2. METHOTREXATE [Concomitant]
  3. ENBREL [Concomitant]
  4. ASPIRIN [Concomitant]
  5. LIPITOR [Concomitant]
  6. DYAZIDE (HYDROCHLOROTHIAZIDE) [Concomitant]
  7. NEXIUM (ESOMEPRZOLE) [Concomitant]

REACTIONS (2)
  - MEDICATION ERROR [None]
  - RESPIRATORY FAILURE [None]
